FAERS Safety Report 17086197 (Version 1)
Quarter: 2019Q4

REPORT INFORMATION
  Report Type: Spontaneous
  Country: US (occurrence: US)
  Receive Date: 20191127
  Receipt Date: 20191127
  Transmission Date: 20200122
  Serious: Yes (Hospitalization, Other)
  Sender: FDA-Public Use
  Company Number: None

PATIENT
  Age: 69 Year
  Sex: Male
  Weight: 81 kg

DRUGS (2)
  1. TYLENOL [Concomitant]
     Active Substance: ACETAMINOPHEN
  2. NINLARO [Suspect]
     Active Substance: IXAZOMIB CITRATE
     Indication: PLASMA CELL MYELOMA
     Dosage: ?          QUANTITY:1 CAPSULE(S);OTHER FREQUENCY:1 ONCE A WEEK;?
     Route: 048

REACTIONS (4)
  - Joint swelling [None]
  - Peripheral swelling [None]
  - Neuropathy peripheral [None]
  - Rash maculo-papular [None]

NARRATIVE: CASE EVENT DATE: 20191105
